FAERS Safety Report 10477306 (Version 1)
Quarter: 2014Q3

REPORT INFORMATION
  Report Type: Spontaneous
  Country: US (occurrence: US)
  Receive Date: 20140926
  Receipt Date: 20140926
  Transmission Date: 20150326
  Serious: Yes (Other)
  Sender: FDA-Public Use
  Company Number: US-CIPLA LTD.-2014US01426

PATIENT
  Age: 11 Year
  Sex: Male

DRUGS (6)
  1. TOPIRAMATE. [Suspect]
     Active Substance: TOPIRAMATE
     Indication: MENTAL DISABILITY
  2. TOPIRAMATE. [Suspect]
     Active Substance: TOPIRAMATE
     Indication: EPILEPSY
  3. DIAZEPAM. [Concomitant]
     Active Substance: DIAZEPAM
  4. TOPIRAMATE. [Suspect]
     Active Substance: TOPIRAMATE
     Indication: CEREBRAL PALSY
  5. PHENOBARBITAL. [Concomitant]
     Active Substance: PHENOBARBITAL
  6. BACLOFEN. [Concomitant]
     Active Substance: BACLOFEN

REACTIONS (9)
  - Acute hepatic failure [None]
  - Mental impairment [Unknown]
  - Hypovolaemic shock [Unknown]
  - Somnolence [Unknown]
  - Diarrhoea [Unknown]
  - Hyperammonaemia [None]
  - Hepatic encephalopathy [Unknown]
  - Renal failure acute [Unknown]
  - Coagulopathy [None]
